FAERS Safety Report 15438596 (Version 1)
Quarter: 2018Q3

REPORT INFORMATION
  Report Type: Spontaneous
  Country: BR (occurrence: BR)
  Receive Date: 20180928
  Receipt Date: 20180928
  Transmission Date: 20181010
  Serious: Yes (Other)
  Sender: FDA-Public Use
  Company Number: BR-009507513-1809BRA009685

PATIENT
  Sex: Female
  Weight: 70 kg

DRUGS (3)
  1. LOSARTAN POTASSIUM. [Suspect]
     Active Substance: LOSARTAN POTASSIUM
     Indication: BLOOD PRESSURE ABNORMAL
     Dosage: 50 MG (1 TABLET), IN THE MORNING
     Route: 048
     Dates: start: 2014
  2. MODURETIC 5?50 [Suspect]
     Active Substance: AMILORIDE HYDROCHLORIDE\HYDROCHLOROTHIAZIDE
     Indication: BLOOD PRESSURE ABNORMAL
     Dosage: 1 TABLET (25MG/2.5MG), QD
     Route: 048
  3. FRONTAL [Concomitant]
     Active Substance: ALPRAZOLAM
     Dosage: 0.25 MG (1 TABLET), AT NIGHT (HS)
     Route: 048

REACTIONS (7)
  - Diabetes mellitus [Unknown]
  - Peripheral swelling [Unknown]
  - Product blister packaging issue [Unknown]
  - Product physical issue [Unknown]
  - Poor quality drug administered [Unknown]
  - Heart rate abnormal [Unknown]
  - Blood pressure increased [Unknown]
